FAERS Safety Report 11330279 (Version 1)
Quarter: 2015Q3

REPORT INFORMATION
  Report Type: Spontaneous
  Country: IT (occurrence: IT)
  Receive Date: 20150803
  Receipt Date: 20150803
  Transmission Date: 20151125
  Serious: Yes (Hospitalization)
  Sender: FDA-Public Use
  Company Number: IT-PFIZER INC-2015254447

PATIENT
  Age: 63 Year
  Sex: Female

DRUGS (3)
  1. HALCION [Suspect]
     Active Substance: TRIAZOLAM
     Indication: ANXIETY
     Dosage: 35 DF, TOTAL
     Route: 048
     Dates: start: 20150105, end: 20150105
  2. DEPAKIN [Concomitant]
     Active Substance: VALPROATE SODIUM
     Indication: DEPRESSION
     Dosage: 2 DF, UNK
     Route: 048
     Dates: start: 20140101
  3. VENLAFAXINA EG [Concomitant]
     Indication: DEPRESSION
     Dosage: 1 DF, UNK
     Route: 048
     Dates: start: 20140101

REACTIONS (3)
  - Overdose [Recovered/Resolved]
  - Intentional self-injury [Recovered/Resolved]
  - Psychomotor retardation [Recovered/Resolved]

NARRATIVE: CASE EVENT DATE: 20150105
